FAERS Safety Report 12416044 (Version 1)
Quarter: 2016Q2

REPORT INFORMATION
  Report Type: Spontaneous
  Country: US (occurrence: US)
  Receive Date: 20160530
  Receipt Date: 20160530
  Transmission Date: 20160815
  Serious: Yes (Other)
  Sender: FDA-Public Use
  Company Number: US-BRISTOL-MYERS SQUIBB COMPANY-BMS-2016-040572

PATIENT
  Sex: Male

DRUGS (1)
  1. KENALOG-40 [Suspect]
     Active Substance: TRIAMCINOLONE ACETONIDE
     Indication: PAIN
     Route: 008

REACTIONS (6)
  - Asthenia [Unknown]
  - Injection site pain [Unknown]
  - Off label use [Unknown]
  - Bladder disorder [Unknown]
  - Pain in extremity [Unknown]
  - Paralysis [Unknown]
